FAERS Safety Report 10076805 (Version 2)
Quarter: 2014Q2

REPORT INFORMATION
  Report Type: Report from Study
  Country: CA (occurrence: CA)
  Receive Date: 20140414
  Receipt Date: 20140414
  Transmission Date: 20141212
  Serious: Yes (Other)
  Sender: FDA-Public Use
  Company Number: CA-ABBVIE-13P-028-1178506-00

PATIENT
  Sex: Female
  Weight: 59.02 kg

DRUGS (3)
  1. HUMIRA [Suspect]
     Indication: HIDRADENITIS
     Route: 058
     Dates: start: 20090414, end: 2013
  2. HUMIRA [Suspect]
     Dates: start: 20131207
  3. INSULIN (NON-ABBVIE) [Concomitant]
     Indication: DIABETES MELLITUS
     Dosage: 4-6 UNITS
     Route: 058

REACTIONS (4)
  - Bartholin^s abscess [Recovered/Resolved]
  - Drug effect incomplete [Unknown]
  - Surgery [Recovered/Resolved]
  - Infection [Not Recovered/Not Resolved]
